FAERS Safety Report 16962500 (Version 1)
Quarter: 2019Q4

REPORT INFORMATION
  Report Type: Spontaneous
  Country: CN (occurrence: CN)
  Receive Date: 20191025
  Receipt Date: 20191025
  Transmission Date: 20200122
  Serious: Yes (Other)
  Sender: FDA-Public Use
  Company Number: CN-PFIZER INC-2019456892

PATIENT
  Age: 31 Year
  Sex: Male
  Weight: 69 kg

DRUGS (2)
  1. MEDROL [Suspect]
     Active Substance: METHYLPREDNISOLONE
     Indication: SUPPORTIVE CARE
     Dosage: 8 MG, 1X/DAY
     Route: 048
     Dates: start: 20190724
  2. RITUXIMAB. [Concomitant]
     Active Substance: RITUXIMAB

REACTIONS (2)
  - Folliculitis [Recovering/Resolving]
  - Dermatitis contact [Recovering/Resolving]

NARRATIVE: CASE EVENT DATE: 20190802
